FAERS Safety Report 23030936 (Version 1)
Quarter: 2023Q4

REPORT INFORMATION
  Report Type: Other
  Country: CN (occurrence: CN)
  Receive Date: 20231005
  Receipt Date: 20231005
  Transmission Date: 20240110
  Serious: Yes (Other)
  Sender: FDA-Public Use
  Company Number: CN-002147023-NVSC2023CN210764

PATIENT

DRUGS (1)
  1. RANIBIZUMAB [Suspect]
     Active Substance: RANIBIZUMAB
     Indication: Glaucoma
     Dosage: 0.05 ML RANIBIZUMAB INJECTION, 0.20 ML PER BOTTLE
     Route: 050

REACTIONS (2)
  - Conjunctival haemorrhage [Unknown]
  - Off label use [Unknown]
